FAERS Safety Report 16918515 (Version 1)
Quarter: 2019Q4

REPORT INFORMATION
  Report Type: Spontaneous
  Country: KR (occurrence: KR)
  Receive Date: 20191015
  Receipt Date: 20191015
  Transmission Date: 20200122
  Serious: Yes (Other)
  Sender: FDA-Public Use
  Company Number: KR-PFIZER INC-2019441336

PATIENT
  Sex: Female

DRUGS (2)
  1. LINEZOLID. [Suspect]
     Active Substance: LINEZOLID
     Dosage: UNK
  2. DELTYBA [Suspect]
     Active Substance: DELAMANID
     Dosage: UNK (FOR ABOUT ONE MONTH)

REACTIONS (2)
  - Pancytopenia [Recovered/Resolved]
  - Electrocardiogram QT prolonged [Unknown]
